FAERS Safety Report 7101856-4 (Version None)
Quarter: 2010Q4

REPORT INFORMATION
  Report Type: 
  Country: None (occurrence: None)
  Receive Date: 20101115
  Receipt Date: 20101101
  Transmission Date: 20110411
  Serious: Yes (Life-Threatening, Hospitalization)
  Sender: FDA-Public Use
  Company Number: JP-SANOFI-AVENTIS-A01200902102

PATIENT
  Age: 60 Year
  Sex: Male
  Weight: 64 kg

DRUGS (16)
  1. MYSLEE [Suspect]
     Indication: INSOMNIA
     Dosage: UNIT DOSE: 10 MG
     Route: 048
     Dates: end: 20080818
  2. SUNITINIB MALATE [Suspect]
     Dosage: UNIT DOSE: 50 MG
     Route: 048
     Dates: start: 20080814, end: 20080820
  3. SUNITINIB MALATE [Suspect]
     Dosage: UNIT DOSE: 50 MG
     Route: 048
     Dates: start: 20080824, end: 20080830
  4. SUNITINIB MALATE [Suspect]
     Route: 048
     Dates: start: 20080910
  5. SUNITINIB MALATE [Suspect]
     Route: 048
     Dates: start: 20081113
  6. GLEEVEC [Concomitant]
     Route: 048
     Dates: start: 20060101
  7. PARIET [Concomitant]
     Route: 048
     Dates: start: 20080819
  8. URSO 250 [Concomitant]
     Route: 048
     Dates: start: 20080819
  9. ALLELOCK [Concomitant]
     Route: 048
     Dates: start: 20080819
  10. FERROUS CITRATE [Concomitant]
     Route: 048
     Dates: end: 20080818
  11. PREDNISOLONE [Concomitant]
     Route: 048
     Dates: end: 20080818
  12. SHAKUYAKUKANZOUTOU [Concomitant]
     Route: 048
     Dates: start: 20080819
  13. LASIX [Concomitant]
     Route: 042
     Dates: end: 20080818
  14. LASIX [Concomitant]
     Route: 048
     Dates: end: 20080818
  15. ALDACTONE [Concomitant]
     Route: 048
     Dates: end: 20080818
  16. PYDOXAL [Concomitant]
     Route: 048
     Dates: start: 20080818, end: 20080825

REACTIONS (3)
  - PLATELET COUNT DECREASED [None]
  - REVERSIBLE POSTERIOR LEUKOENCEPHALOPATHY SYNDROME [None]
  - THROMBOCYTOPENIA [None]
